FAERS Safety Report 7335441-6 (Version None)
Quarter: 2011Q1

REPORT INFORMATION
  Report Type: 
  Country: None (occurrence: None)
  Receive Date: 20110307
  Receipt Date: 20110228
  Transmission Date: 20110831
  Serious: Yes (Death, Hospitalization, Other)
  Sender: FDA-Public Use
  Company Number: US-ELI_LILLY_AND_COMPANY-US201102007661

PATIENT
  Age: 58 Year
  Sex: Male
  Weight: 61.315 kg

DRUGS (3)
  1. CARBOPLATIN [Suspect]
     Indication: NON-SMALL CELL LUNG CANCER STAGE IV
     Dosage: UNK, OTHER
     Dates: start: 20101206
  2. PEMETREXED [Suspect]
     Indication: NON-SMALL CELL LUNG CANCER STAGE IV
     Dosage: UNK, OTHER
  3. OTHER PHARMA COMPANY INV DRUG [Suspect]
     Indication: NON-SMALL CELL LUNG CANCER STAGE IV
     Dates: start: 20101206

REACTIONS (10)
  - NAUSEA [None]
  - HYPOALBUMINAEMIA [None]
  - DEPRESSION [None]
  - HYPERKALAEMIA [None]
  - LUNG NEOPLASM MALIGNANT [None]
  - PAIN [None]
  - DECREASED APPETITE [None]
  - DEHYDRATION [None]
  - DYSPNOEA [None]
  - HYPERCALCAEMIA [None]
